FAERS Safety Report 18116749 (Version 2)
Quarter: 2020Q3

REPORT INFORMATION
  Report Type: Report from Study
  Country: US (occurrence: US)
  Receive Date: 20200805
  Receipt Date: 20200813
  Transmission Date: 20201103
  Serious: No
  Sender: FDA-Public Use
  Company Number: US-KYOWAKIRIN-2020BKK012664

PATIENT

DRUGS (5)
  1. LEVODOPA?CARBIDOPA [Suspect]
     Active Substance: CARBIDOPA\LEVODOPA
     Dosage: 50/100 TWO 3?4 TIMES A DAY
     Route: 065
     Dates: start: 202007
  2. LEVODOPA?CARBIDOPA [Suspect]
     Active Substance: CARBIDOPA\LEVODOPA
     Indication: PRODUCT USED FOR UNKNOWN INDICATION
     Dosage: 25/250, THREE TIMES A DAY
     Route: 065
  3. LEVODOPA?CARBIDOPA [Suspect]
     Active Substance: CARBIDOPA\LEVODOPA
     Dosage: 25/100 TWO TABLETS 3 OR 4 TIMES A DAY
     Route: 065
  4. LEVODOPA?CARBIDOPA [Suspect]
     Active Substance: CARBIDOPA\LEVODOPA
     Dosage: 50/200 AT NIGHT
     Route: 065
  5. NOURIANZ [Suspect]
     Active Substance: ISTRADEFYLLINE
     Indication: PARKINSON^S DISEASE
     Dosage: 20 MG, ONCE DAILY
     Route: 048
     Dates: start: 20200713

REACTIONS (2)
  - Freezing phenomenon [Recovering/Resolving]
  - Drug ineffective [Recovering/Resolving]

NARRATIVE: CASE EVENT DATE: 202007
